FAERS Safety Report 24023980 (Version 1)
Quarter: 2024Q2

REPORT INFORMATION
  Report Type: Report from Study
  Country: JP (occurrence: JP)
  Receive Date: 20240627
  Receipt Date: 20240627
  Transmission Date: 20240716
  Serious: No
  Sender: FDA-Public Use
  Company Number: JP-ROCHE-3368593

PATIENT
  Age: 83 Year
  Sex: Male

DRUGS (1)
  1. FARICIMAB [Suspect]
     Active Substance: FARICIMAB
     Indication: Retinal neovascularisation
     Dosage: WERE ADMINISTERED TO ALL EYES (6 MG/0.05 ML).
     Route: 050

REACTIONS (1)
  - Retinal pigment epithelial tear [Unknown]
